APPROVED DRUG PRODUCT: INDOMETHACIN
Active Ingredient: INDOMETHACIN
Strength: 50MG
Dosage Form/Route: CAPSULE;ORAL
Application: N018829 | Product #001 | TE Code: AB
Applicant: CHARTWELL MOLECULES LLC
Approved: Aug 6, 1984 | RLD: No | RS: No | Type: RX